FAERS Safety Report 8762880 (Version 2)
Quarter: 2012Q4

REPORT INFORMATION
  Report Type: 
  Country: US (occurrence: US)
  Receive Date: 20120828
  Receipt Date: 20121003
  Transmission Date: 20130627
  Serious: Yes (Other)
  Sender: FDA-Public Use
  Company Number: US-PFIZER INC-2012208445

PATIENT
  Age: 56 Year
  Sex: Female
  Weight: 56.24 kg

DRUGS (7)
  1. PREMPRO [Suspect]
     Indication: MENOPAUSAL SYMPTOMS
     Dosage: UNK, 1x/day
     Dates: start: 2011, end: 2012
  2. PREMPRO [Suspect]
     Indication: BONE DENSITY ABNORMAL
  3. PREMARIN VAGINAL CREAM [Suspect]
     Indication: MENOPAUSAL SYMPTOMS
     Dosage: UNK, 2-3 times per week
     Route: 067
     Dates: start: 2011, end: 2012
  4. PREMARIN VAGINAL CREAM [Suspect]
     Indication: BONE DENSITY ABNORMAL
  5. LEXAPRO [Concomitant]
     Indication: ANXIETY
     Dosage: 10 mg, 1x/day
  6. WELLBUTRIN XR [Concomitant]
     Indication: ANXIETY
     Dosage: 300 mg, 1x/day
  7. XANAX [Concomitant]
     Indication: ANXIETY
     Dosage: 0.5 mg, 4x/day

REACTIONS (3)
  - Eye infection [Recovered/Resolved]
  - Visual impairment [Recovered/Resolved]
  - Corneal abrasion [Recovered/Resolved]
